FAERS Safety Report 4521202-X (Version None)
Quarter: 2004Q4

REPORT INFORMATION
  Report Type: 
  Country: None (occurrence: None)
  Receive Date: 20041208
  Receipt Date: 20041202
  Transmission Date: 20050328
  Serious: Yes (Death, Hospitalization, Other)
  Sender: FDA-Public Use
  Company Number: CA-MERCK-0412CAN00014

PATIENT
  Sex: Female

DRUGS (2)
  1. VIOXX [Suspect]
     Indication: ARTHRITIS
     Route: 048
  2. CELECOXIB [Concomitant]
     Route: 065

REACTIONS (4)
  - CARDIAC DISORDER [None]
  - EMPHYSEMA [None]
  - MALAISE [None]
  - MYOCARDIAL INFARCTION [None]
